FAERS Safety Report 10165436 (Version 1)
Quarter: 2014Q2

REPORT INFORMATION
  Report Type: Spontaneous
  Country: US (occurrence: US)
  Receive Date: 20140510
  Receipt Date: 20140510
  Transmission Date: 20141212
  Serious: Yes (Other)
  Sender: FDA-Public Use
  Company Number: US-BRISTOL-MYERS SQUIBB COMPANY-19836899

PATIENT
  Age: 46 Year
  Sex: Male

DRUGS (8)
  1. BYDUREON [Suspect]
     Indication: TYPE 2 DIABETES MELLITUS
     Route: 058
     Dates: start: 20131115, end: 2013
  2. METFORMIN [Concomitant]
  3. ASPIRIN [Concomitant]
  4. BENADRYL [Concomitant]
  5. PREDNISONE [Concomitant]
  6. EPIPEN [Concomitant]
  7. DEXAMETHASONE [Concomitant]
  8. OMEPRAZOLE [Concomitant]

REACTIONS (4)
  - Joint swelling [Unknown]
  - Lip swelling [Unknown]
  - Paraesthesia oral [Unknown]
  - Throat tightness [Unknown]
